FAERS Safety Report 7689599-X (Version None)
Quarter: 2011Q3

REPORT INFORMATION
  Report Type: 
  Country: None (occurrence: None)
  Receive Date: 20110817
  Receipt Date: 20110811
  Transmission Date: 20111222
  Serious: Yes (Hospitalization, Other)
  Sender: FDA-Public Use
  Company Number: NL-ABBOTT-11P-114-0845635-00

PATIENT
  Age: 9 Year
  Sex: Male

DRUGS (2)
  1. DEPAKENE [Suspect]
     Indication: COMPLEX PARTIAL SEIZURES
  2. LAMOTRIGINE [Interacting]
     Indication: EPILEPSY

REACTIONS (13)
  - RASH ERYTHEMATOUS [None]
  - FACE OEDEMA [None]
  - LIP SWELLING [None]
  - STAPHYLOCOCCAL INFECTION [None]
  - CHAPPED LIPS [None]
  - MUCOSAL EROSION [None]
  - PRURITUS [None]
  - STEVENS-JOHNSON SYNDROME [None]
  - PYREXIA [None]
  - DRUG INTERACTION [None]
  - BLISTER [None]
  - TOXIC EPIDERMAL NECROLYSIS [None]
  - NECROSIS [None]
